FAERS Safety Report 24006708 (Version 1)
Quarter: 2024Q2

REPORT INFORMATION
  Report Type: Spontaneous
  Country: CN (occurrence: CN)
  Receive Date: 20240624
  Receipt Date: 20240624
  Transmission Date: 20240716
  Serious: Yes (Hospitalization, Other)
  Sender: FDA-Public Use
  Company Number: CN-002147023-NVSC2024CN130971

PATIENT
  Age: 56 Year
  Sex: Female
  Weight: 55 kg

DRUGS (1)
  1. CARBAMAZEPINE [Suspect]
     Active Substance: CARBAMAZEPINE
     Indication: Facial spasm
     Dosage: 100 MG, BID
     Route: 048
     Dates: start: 20240517, end: 20240609

REACTIONS (12)
  - Rash [Unknown]
  - Pruritus [Unknown]
  - Drug-induced liver injury [Unknown]
  - Alanine aminotransferase increased [Unknown]
  - Aspartate aminotransferase increased [Unknown]
  - Blood alkaline phosphatase increased [Unknown]
  - Blood albumin decreased [Unknown]
  - Protein total decreased [Unknown]
  - Gamma-glutamyltransferase increased [Unknown]
  - Bile acids increased [Unknown]
  - Alpha hydroxybutyrate dehydrogenase increased [Unknown]
  - Prealbumin decreased [Unknown]

NARRATIVE: CASE EVENT DATE: 20240609
